FAERS Safety Report 6222490-4 (Version None)
Quarter: 2009Q2

REPORT INFORMATION
  Report Type: 
  Country: None (occurrence: None)
  Receive Date: 20090608
  Receipt Date: 20090601
  Transmission Date: 20091009
  Serious: Yes (Other)
  Sender: FDA-Public Use
  Company Number: US-GENENTECH-284217

PATIENT

DRUGS (15)
  1. BLINDED BEVACIZUMAB [Suspect]
     Indication: BREAST CANCER
     Dosage: 15 MG/KG, Q21D FOR CYCLE 5-8
     Route: 042
     Dates: end: 20090401
  2. CYCLOPHOSPHAMIDE [Suspect]
     Indication: BREAST CANCER
     Dosage: 15 MG/KG, Q21D FOR CYCLE 5-8
     Route: 042
     Dates: end: 20090401
  3. DOXORUBICIN HCL [Suspect]
     Indication: BREAST CANCER
     Dosage: 15 MG/KG, Q21D FOR CYCLE 5-8
     Route: 042
     Dates: end: 20090401
  4. BLINDED PACLITAXEL [Suspect]
     Indication: BREAST CANCER
     Dosage: 15 MG/KG, Q21D FOR CYCLE 5-8
     Route: 042
     Dates: end: 20090401
  5. BLINDED PLACEBO [Suspect]
     Indication: BREAST CANCER
     Dosage: 15 MG/KG, Q21D FOR CYCLE 5-8
     Route: 042
     Dates: end: 20090401
  6. BLINDED BEVACIZUMAB [Suspect]
     Dosage: 10 MG/KG, Q14D FOR CYCLE 1-4
     Route: 042
     Dates: start: 20081205
  7. CYCLOPHOSPHAMIDE [Suspect]
     Dosage: 10 MG/KG, Q14D FOR CYCLE 1-4
     Route: 042
     Dates: start: 20081205
  8. DOXORUBICIN HCL [Suspect]
     Dosage: 10 MG/KG, Q14D FOR CYCLE 1-4
     Route: 042
     Dates: start: 20081205
  9. BLINDED PACLITAXEL [Suspect]
     Dosage: 10 MG/KG, Q14D FOR CYCLE 1-4
     Route: 042
     Dates: start: 20081205
  10. BLINDED PLACEBO [Suspect]
     Dosage: 10 MG/KG, Q14D FOR CYCLE 1-4
     Route: 042
     Dates: start: 20081205
  11. PACLITAXEL [Suspect]
     Indication: BREAST CANCER
     Dosage: 80 MG/M2, DAYS 1, 8 + 15 / Q21D FOR CYCLE 5-8
     Route: 042
  12. DOXORUBICIN HCL [Suspect]
     Indication: BREAST CANCER
     Dosage: 60 MG/M2, Q14D FOR CYCLE 1-4
     Route: 042
     Dates: start: 20081205
  13. CYCLOPHOSPHAMIDE [Suspect]
     Indication: BREAST CANCER
     Dosage: 600 MG/M2, Q14D FOR CYCLE 1-4
     Route: 042
     Dates: start: 20081205
  14. FILGRASTIM [Suspect]
     Indication: DRUG USE FOR UNKNOWN INDICATION
     Dosage: 5 A?G/KG, DAYS 2-11 / Q14D FOR CYCLE 1-4
     Route: 058
     Dates: start: 20081205
  15. PEGFILGRASTIM [Suspect]
     Indication: DRUG USE FOR UNKNOWN INDICATION
     Dosage: 6 MG, DAY 2 / Q14D FOR CYCLE 1-4
     Route: 058
     Dates: start: 20081205

REACTIONS (1)
  - POLLAKIURIA [None]
